FAERS Safety Report 24276643 (Version 2)
Quarter: 2024Q3

REPORT INFORMATION
  Report Type: Spontaneous
  Country: US (occurrence: US)
  Receive Date: 20240903
  Receipt Date: 20240906
  Transmission Date: 20241017
  Serious: Yes (Hospitalization, Other)
  Sender: SANOFI AVENTIS
  Company Number: US-SA-2024SA254345

PATIENT
  Age: 79 Year
  Sex: Male

DRUGS (1)
  1. DUPILUMAB [Suspect]
     Active Substance: DUPILUMAB
     Indication: Dermatitis atopic
     Dosage: 300 MG, QOW
     Dates: start: 202406

REACTIONS (3)
  - Hip fracture [Unknown]
  - Rib fracture [Unknown]
  - Fracture [Unknown]

NARRATIVE: CASE EVENT DATE: 20240101
